FAERS Safety Report 6131157-2 (Version None)
Quarter: 2009Q1

REPORT INFORMATION
  Report Type: 
  Country: None (occurrence: None)
  Receive Date: 20090325
  Receipt Date: 20090313
  Transmission Date: 20090719
  Serious: Yes (Hospitalization)
  Sender: FDA-Public Use
  Company Number: CH-WYE-G03313709

PATIENT
  Age: 26 Year
  Sex: Male
  Weight: 88 kg

DRUGS (3)
  1. EFFEXOR [Suspect]
     Indication: SCHIZOPHRENIA
     Route: 048
     Dates: start: 20080701, end: 20090201
  2. EFFEXOR [Suspect]
     Indication: OFF LABEL USE
  3. CLOZAPINE [Suspect]
     Indication: SCHIZOPHRENIA
     Route: 048
     Dates: start: 20080701, end: 20090101

REACTIONS (7)
  - ACUTE PSYCHOSIS [None]
  - AGGRESSION [None]
  - ALANINE AMINOTRANSFERASE INCREASED [None]
  - ASPARTATE AMINOTRANSFERASE INCREASED [None]
  - DISEASE PROGRESSION [None]
  - DRUG INEFFECTIVE FOR UNAPPROVED INDICATION [None]
  - RHABDOMYOLYSIS [None]
